FAERS Safety Report 24565036 (Version 1)
Quarter: 2024Q4

REPORT INFORMATION
  Report Type: Spontaneous
  Country: US (occurrence: None)
  Receive Date: 20241029
  Receipt Date: 20241029
  Transmission Date: 20250114
  Serious: Yes (Other)
  Sender: Public
  Company Number: None

PATIENT
  Age: 68 Year
  Sex: Female
  Weight: 72.9 kg

DRUGS (3)
  1. FLUOXETINE [Suspect]
     Active Substance: FLUOXETINE HYDROCHLORIDE
     Indication: Depression
     Dosage: FREQUENCY : DAILY;?
     Route: 048
     Dates: start: 19990401, end: 20241005
  2. KLONOPIN [Concomitant]
     Active Substance: CLONAZEPAM
  3. OTC ALLERGY MEDS [Concomitant]

REACTIONS (3)
  - Product use issue [None]
  - Insurance issue [None]
  - Depression [None]

NARRATIVE: CASE EVENT DATE: 20241005
